FAERS Safety Report 5473204-7 (Version None)
Quarter: 2007Q4

REPORT INFORMATION
  Report Type: 
  Country: None (occurrence: None)
  Receive Date: 20071001
  Receipt Date: 20070927
  Transmission Date: 20080405
  Serious: Yes (Life-Threatening)
  Sender: FDA-Public Use
  Company Number: JP-ASTRAZENECA-2007AP06112

PATIENT
  Age: 75 Year
  Sex: Female
  Weight: 47 kg

DRUGS (3)
  1. DIPRIVAN [Suspect]
     Indication: INDUCTION OF ANAESTHESIA
     Route: 042
  2. REMIFENTANIL HYDROCHLORIDE [Suspect]
     Indication: INDUCTION OF ANAESTHESIA
     Route: 041
  3. VECURONIUM BROMIDE [Concomitant]
     Indication: INDUCTION OF ANAESTHESIA

REACTIONS (1)
  - ATRIOVENTRICULAR BLOCK COMPLETE [None]
